FAERS Safety Report 7503232-9 (Version None)
Quarter: 2011Q2

REPORT INFORMATION
  Report Type: 
  Country: None (occurrence: None)
  Receive Date: 20110525
  Receipt Date: 20110512
  Transmission Date: 20111010
  Serious: No
  Sender: FDA-Public Use
  Company Number: FR-JNJFOC-20110508123

PATIENT
  Age: 39 Year
  Sex: Male

DRUGS (9)
  1. DURAGESIC-100 [Suspect]
     Indication: CANCER PAIN
  2. DURAGESIC-100 [Suspect]
  3. GABAPENTINE [Concomitant]
     Route: 065
  4. ANALGESICS [Concomitant]
     Route: 065
  5. DURAGESIC-100 [Suspect]
  6. DURAGESIC-100 [Suspect]
  7. DURAGESIC-100 [Suspect]
  8. DURAGESIC-100 [Suspect]
  9. AMITRIPTYLINE HCL [Concomitant]
     Route: 065

REACTIONS (2)
  - INAPPROPRIATE SCHEDULE OF DRUG ADMINISTRATION [None]
  - WITHDRAWAL SYNDROME [None]
